FAERS Safety Report 14018996 (Version 1)
Quarter: 2017Q3

REPORT INFORMATION
  Report Type: Spontaneous
  Country: US (occurrence: None)
  Receive Date: 20170928
  Receipt Date: 20170928
  Transmission Date: 20171128
  Serious: Yes (Death)
  Sender: FDA-Public Use
  Company Number: None

PATIENT
  Age: 70 Year
  Sex: Male
  Weight: 127.01 kg

DRUGS (1)
  1. LABETALOL [Suspect]
     Active Substance: LABETALOL\LABETALOL HYDROCHLORIDE
     Indication: HYPERTENSIVE CRISIS
     Dosage: 20 MG IVP
     Dates: start: 201608

REACTIONS (3)
  - Cardio-respiratory arrest [None]
  - Atrioventricular block [None]
  - Heart rate decreased [None]

NARRATIVE: CASE EVENT DATE: 201608
